FAERS Safety Report 4288718-5 (Version None)
Quarter: 2004Q1

REPORT INFORMATION
  Report Type: 
  Country: None (occurrence: None)
  Receive Date: 20040205
  Receipt Date: 20040127
  Transmission Date: 20041129
  Serious: Yes (Hospitalization)
  Sender: FDA-Public Use
  Company Number: GB-JNJFOC-20040105149

PATIENT
  Age: 77 Year
  Sex: Female

DRUGS (6)
  1. REMICADE [Suspect]
     Indication: RHEUMATOID ARTHRITIS
     Dosage: 150 MG, INTRAVENOUS
     Route: 042
     Dates: start: 20030624
  2. METHOTREXATE [Concomitant]
  3. FOSAMAX [Concomitant]
  4. ARTHROTEC [Concomitant]
  5. FERROUS SULPHATE (FERROUS SULPHATE) [Concomitant]
  6. FOLIC ACID [Concomitant]

REACTIONS (4)
  - ANXIETY [None]
  - DYSPNOEA [None]
  - MALAISE [None]
  - OSTEOPOROSIS [None]
